FAERS Safety Report 18515227 (Version 1)
Quarter: 2020Q4

REPORT INFORMATION
  Report Type: Other
  Country: CA (occurrence: CA)
  Receive Date: 20201118
  Receipt Date: 20201118
  Transmission Date: 20210114
  Serious: Yes (Hospitalization, Other)
  Sender: FDA-Public Use
  Company Number: CA-CELLTRION INC.-2020CA031393

PATIENT

DRUGS (10)
  1. RITUXIMAB (UNKNOWN) [Suspect]
     Active Substance: RITUXIMAB
     Indication: JUVENILE IDIOPATHIC ARTHRITIS
     Route: 042
  2. BENADRYL [Concomitant]
     Active Substance: DIPHENHYDRAMINE HYDROCHLORIDE
  3. VOLTAREN [DICLOFENAC] [Concomitant]
     Active Substance: DICLOFENAC SODIUM
  4. ACTEMRA [Suspect]
     Active Substance: TOCILIZUMAB
     Dosage: 480 MILLIGRAM, 1 EVERY 4 WEEKS
     Route: 042
  5. ENBREL [Concomitant]
     Active Substance: ETANERCEPT
  6. METHOTREXATE. [Concomitant]
     Active Substance: METHOTREXATE
     Route: 058
  7. ACTEMRA [Suspect]
     Active Substance: TOCILIZUMAB
     Indication: JUVENILE IDIOPATHIC ARTHRITIS
     Dosage: 560 MILLIGRAM, 1 EVERY 4 WEEKS
     Route: 042
  8. PREDNISONE. [Concomitant]
     Active Substance: PREDNISONE
     Indication: JUVENILE IDIOPATHIC ARTHRITIS
  9. LEUCOVORIN [FOLINIC ACID] [Concomitant]
     Active Substance: LEUCOVORIN
  10. LOSEC [Concomitant]
     Active Substance: OMEPRAZOLE

REACTIONS (9)
  - Neck pain [Recovered/Resolved]
  - Glioblastoma [Recovered/Resolved]
  - Hypophagia [Recovered/Resolved]
  - Arthritis [Recovered/Resolved]
  - Brain neoplasm [Recovered/Resolved]
  - Headache [Recovered/Resolved]
  - Contrast media allergy [Recovered/Resolved]
  - Vomiting [Recovered/Resolved]
  - Off label use [Unknown]
